FAERS Safety Report 21572076 (Version 7)
Quarter: 2024Q4

REPORT INFORMATION
  Report Type: Report from Study
  Country: CA (occurrence: CA)
  Receive Date: 20221109
  Receipt Date: 20241014
  Transmission Date: 20250115
  Serious: Yes (Other)
  Sender: JOHNSON AND JOHNSON
  Company Number: CA-JNJFOC-20220915130

PATIENT
  Age: 47 Year
  Sex: Male
  Weight: 67 kg

DRUGS (1)
  1. REMICADE [Suspect]
     Active Substance: INFLIXIMAB
     Indication: Crohn^s disease
     Dosage: BATCH NUMBER: MHM18013,24B037X5 EXPIRY DATE: 31-JUL-2025,31-JAN-2027
     Route: 041
     Dates: start: 20161019

REACTIONS (12)
  - Crohn^s disease [Not Recovered/Not Resolved]
  - Blood iron decreased [Not Recovered/Not Resolved]
  - Serum ferritin decreased [Recovering/Resolving]
  - Haemoglobin decreased [Unknown]
  - Musculoskeletal chest pain [Recovered/Resolved]
  - COVID-19 [Not Recovered/Not Resolved]
  - Gastrointestinal inflammation [Unknown]
  - Asthenia [Not Recovered/Not Resolved]
  - Dyspnoea [Unknown]
  - Fatigue [Not Recovered/Not Resolved]
  - Dizziness [Unknown]
  - Drug ineffective [Unknown]

NARRATIVE: CASE EVENT DATE: 20220906
